FAERS Safety Report 4881588-3 (Version None)
Quarter: 2005Q4

REPORT INFORMATION
  Report Type: 
  Country: None (occurrence: None)
  Receive Date: 20051209
  Receipt Date: 20050816
  Transmission Date: 20060501
  Serious: Yes (Death)
  Sender: FDA-Public Use
  Company Number: USA-2005-0021049

PATIENT
  Age: 48 Year
  Sex: Female

DRUGS (8)
  1. OXYCONTIN [Suspect]
  2. MORPHINE SULFATE [Suspect]
  3. FENTANYL [Suspect]
  4. COCAINE (COCAINE) [Suspect]
  5. OXYMORPHONE HYDROCHLORIDE [Suspect]
  6. XANAX [Suspect]
  7. PERCOCET [Suspect]
  8. SEROQUEL [Suspect]

REACTIONS (3)
  - DRUG DEPENDENCE [None]
  - MULTIPLE DRUG OVERDOSE INTENTIONAL [None]
  - POLYSUBSTANCE ABUSE [None]
